FAERS Safety Report 5332799-4 (Version None)
Quarter: 2007Q2

REPORT INFORMATION
  Report Type: 
  Country: None (occurrence: None)
  Receive Date: 20070518
  Receipt Date: 20070514
  Transmission Date: 20071010
  Serious: Yes (Other)
  Sender: FDA-Public Use
  Company Number: 2007SP009373

PATIENT
  Age: 58 Year
  Sex: Male
  Weight: 71 kg

DRUGS (5)
  1. PEG-INTRON [Suspect]
     Indication: HEPATITIS C
     Dosage: SEE IMAGE
     Route: 058
     Dates: start: 20051206, end: 20060104
  2. PEG-INTRON [Suspect]
     Indication: HEPATITIS C
     Dosage: SEE IMAGE
     Route: 058
     Dates: start: 20060105, end: 20060209
  3. REBETOL [Suspect]
     Indication: HEPATITIS C
     Dosage: 800 MG; QD; PO
     Route: 048
     Dates: start: 20051206, end: 20060209
  4. BLOPRESS [Concomitant]
  5. LASIX [Concomitant]

REACTIONS (2)
  - CARDIAC FAILURE [None]
  - NEUTROPHIL COUNT DECREASED [None]
